FAERS Safety Report 18641889 (Version 1)
Quarter: 2020Q4

REPORT INFORMATION
  Report Type: Spontaneous
  Country: US (occurrence: US)
  Receive Date: 20201218
  Receipt Date: 20201218
  Transmission Date: 20210114
  Serious: Yes (Hospitalization)
  Sender: FDA-Public Use
  Company Number: None

PATIENT
  Age: 78 Year
  Sex: Male
  Weight: 73 kg

DRUGS (1)
  1. SORAFENIB (SORAFENIB 200MG TAB) [Suspect]
     Active Substance: SORAFENIB
     Indication: HEPATOCELLULAR CARCINOMA
     Route: 048
     Dates: start: 20200527, end: 20200619

REACTIONS (2)
  - Lipase increased [None]
  - Pancreatitis acute [None]

NARRATIVE: CASE EVENT DATE: 20200622
